FAERS Safety Report 15661615 (Version 2)
Quarter: 2018Q4

REPORT INFORMATION
  Report Type: Spontaneous
  Country: US (occurrence: US)
  Receive Date: 20181127
  Receipt Date: 20181127
  Transmission Date: 20190205
  Serious: Yes (Other)
  Sender: FDA-Public Use
  Company Number: US-GILEAD-2018-0375846

PATIENT
  Age: 79 Year
  Sex: Male

DRUGS (1)
  1. RANEXA [Suspect]
     Active Substance: RANOLAZINE
     Indication: PRODUCT USED FOR UNKNOWN INDICATION
     Dosage: UNK
     Route: 065

REACTIONS (12)
  - Unevaluable event [Unknown]
  - Malaise [Unknown]
  - Fatigue [Unknown]
  - Hypotension [Unknown]
  - Prostate infection [Unknown]
  - Helicobacter infection [Unknown]
  - Visual impairment [Unknown]
  - Blood pressure diastolic abnormal [Unknown]
  - Chest pain [Unknown]
  - Pyrexia [Unknown]
  - Discomfort [Unknown]
  - Product storage error [Recovered/Resolved]

NARRATIVE: CASE EVENT DATE: 2018
